FAERS Safety Report 15668120 (Version 2)
Quarter: 2018Q4

REPORT INFORMATION
  Report Type: Spontaneous
  Country: AR (occurrence: AR)
  Receive Date: 20181129
  Receipt Date: 20181228
  Transmission Date: 20190205
  Serious: Yes (Other)
  Sender: FDA-Public Use
  Company Number: AR-AMGEN-ARGSP2018169757

PATIENT
  Age: 50 Year
  Sex: Female

DRUGS (1)
  1. ENBREL [Suspect]
     Active Substance: ETANERCEPT
     Indication: RHEUMATOID ARTHRITIS
     Dosage: 50 MG, EVERY 10 DAYS
     Route: 065
     Dates: start: 20010707, end: 201807

REACTIONS (3)
  - Product use issue [Unknown]
  - Decreased immune responsiveness [Not Recovered/Not Resolved]
  - Infected fistula [Not Recovered/Not Resolved]

NARRATIVE: CASE EVENT DATE: 20010707
